FAERS Safety Report 23107416 (Version 3)
Quarter: 2023Q4

REPORT INFORMATION
  Report Type: Report from Study
  Country: US (occurrence: US)
  Receive Date: 20231026
  Receipt Date: 20231120
  Transmission Date: 20240110
  Serious: No
  Sender: FDA-Public Use
  Company Number: US-JNJFOC-20231025012

PATIENT
  Age: 45 Year
  Sex: Female

DRUGS (2)
  1. STELARA [Suspect]
     Active Substance: USTEKINUMAB
     Indication: Crohn^s disease
     Dosage: STELARA INFUSION ON 18/JAN/2023
     Route: 058
  2. STELARA [Suspect]
     Active Substance: USTEKINUMAB

REACTIONS (4)
  - Needle issue [Unknown]
  - Injection site discharge [Unknown]
  - Accidental exposure to product [Unknown]
  - Underdose [Unknown]
